FAERS Safety Report 9927290 (Version 1)
Quarter: 2014Q1

REPORT INFORMATION
  Report Type: Spontaneous
  Country: US (occurrence: US)
  Receive Date: 20140226
  Receipt Date: 20140226
  Transmission Date: 20141002
  Serious: Yes (Hospitalization, Other)
  Sender: FDA-Public Use
  Company Number: US-RB-063824-14

PATIENT
  Age: 24 Hour
  Sex: Female

DRUGS (1)
  1. BUPRENORPHINE UNSPECIFIED [Suspect]
     Indication: DRUG DEPENDENCE
     Dosage: DOSING DETAILS UNKNOWN
     Route: 064
     Dates: end: 2009

REACTIONS (5)
  - Foetal exposure during pregnancy [Recovered/Resolved]
  - Drug withdrawal syndrome neonatal [Recovered/Resolved]
  - Hyperaesthesia [Recovered/Resolved]
  - Crying [Recovered/Resolved]
  - Feeding disorder neonatal [Recovered/Resolved]
